FAERS Safety Report 8289891-4 (Version None)
Quarter: 2012Q2

REPORT INFORMATION
  Report Type: 
  Country: None (occurrence: None)
  Receive Date: 20120417
  Receipt Date: 20120411
  Transmission Date: 20120825
  Serious: Yes (Hospitalization)
  Sender: FDA-Public Use
  Company Number: US-B.I. PHARMACEUTICALS,INC./RIDGEFIELD-2012-BP-06842BP

PATIENT
  Sex: Female

DRUGS (12)
  1. SPIRIVA [Suspect]
     Indication: CHRONIC OBSTRUCTIVE PULMONARY DISEASE
     Dosage: 18 MCG
     Route: 055
     Dates: start: 20040101, end: 20120201
  2. STOOL SOFTENER [Concomitant]
     Indication: CONSTIPATION
     Dosage: 450 MG
     Route: 048
  3. PROPYLENE GLYCOL [Concomitant]
     Indication: DRY EYE
     Dates: start: 20110101
  4. TOPIRAMATE [Concomitant]
     Indication: MIGRAINE
  5. METHADON HCL TAB [Concomitant]
     Indication: COMPLEX REGIONAL PAIN SYNDROME
     Dosage: 30 MG
     Route: 048
  6. TOPIRAMATE [Concomitant]
     Indication: CONVULSION
     Dosage: 600 MG
     Route: 048
     Dates: start: 20120201
  7. CLARITIN [Concomitant]
     Indication: MULTIPLE ALLERGIES
     Route: 048
  8. DIAZEPAM [Concomitant]
     Dosage: 30 MG
     Route: 048
  9. LORAZEPAM [Concomitant]
     Dosage: 20 MG
     Route: 048
  10. DILANTIN [Concomitant]
     Indication: CONVULSION
     Route: 048
     Dates: start: 20040101, end: 20120201
  11. FLUTICASONE PROPIONATE [Concomitant]
     Indication: SEASONAL ALLERGY
     Route: 045
  12. PROPYLENE GLYCOL [Concomitant]
     Indication: DRY EYE
     Dates: start: 20110101

REACTIONS (3)
  - BLINDNESS UNILATERAL [None]
  - PNEUMONIA [None]
  - VISUAL ACUITY REDUCED [None]
